FAERS Safety Report 18943569 (Version 1)
Quarter: 2021Q1

REPORT INFORMATION
  Report Type: Other
  Country: US (occurrence: US)
  Receive Date: 20210226
  Receipt Date: 20210226
  Transmission Date: 20210420
  Serious: Yes (Hospitalization)
  Sender: FDA-Public Use
  Company Number: US-ROCHE-2753275

PATIENT
  Sex: Female
  Weight: 59.93 kg

DRUGS (3)
  1. ACTEMRA [Suspect]
     Active Substance: TOCILIZUMAB
  2. XOLAIR [Suspect]
     Active Substance: OMALIZUMAB
     Indication: ASTHMA
     Route: 058
  3. ACTEMRA [Suspect]
     Active Substance: TOCILIZUMAB
     Indication: POLYMYALGIA RHEUMATICA
     Route: 058

REACTIONS (9)
  - Eye disorder [Unknown]
  - Intentional product use issue [Unknown]
  - Walking aid user [Unknown]
  - Asthenia [Unknown]
  - Chest pain [Unknown]
  - Off label use [Unknown]
  - Cardiac disorder [Unknown]
  - Cataract [Unknown]
  - Visual impairment [Unknown]
